FAERS Safety Report 4446492-3 (Version None)
Quarter: 2004Q3

REPORT INFORMATION
  Report Type: 
  Country: None (occurrence: None)
  Receive Date: 20040908
  Receipt Date: 20040823
  Transmission Date: 20050211
  Serious: Yes (Disabling)
  Sender: FDA-Public Use
  Company Number: GB-2004-028918

PATIENT
  Age: 40 Year
  Sex: Female
  Weight: 104 kg

DRUGS (1)
  1. MIRENA [Suspect]
     Indication: CONTRACEPTION
     Dosage: 20 UG/DAY, CONT INTRA UTERINE
     Route: 015
     Dates: start: 19990526, end: 20040519

REACTIONS (5)
  - ARTHRALGIA [None]
  - BACK PAIN [None]
  - HYPERSENSITIVITY [None]
  - MYALGIA [None]
  - PAIN IN EXTREMITY [None]
